FAERS Safety Report 9543064 (Version 1)
Quarter: 2013Q3

REPORT INFORMATION
  Report Type: Report from Study
  Country: BR (occurrence: BR)
  Receive Date: 20130923
  Receipt Date: 20130923
  Transmission Date: 20140515
  Serious: Yes (Hospitalization)
  Sender: FDA-Public Use
  Company Number: BR-SANOFI-AVENTIS-2013SA092567

PATIENT
  Age: 15 Year
  Sex: Female
  Weight: 48 kg

DRUGS (4)
  1. CEREZYME [Suspect]
     Indication: GAUCHER^S DISEASE
     Route: 042
     Dates: start: 20011011
  2. CEREZYME [Suspect]
     Indication: GAUCHER^S DISEASE
     Route: 042
  3. CEREZYME [Suspect]
     Indication: GAUCHER^S DISEASE
     Route: 042
  4. CEREZYME [Suspect]
     Indication: GAUCHER^S DISEASE
     Route: 042
     Dates: start: 20120514

REACTIONS (4)
  - Osteonecrosis [Not Recovered/Not Resolved]
  - Gait disturbance [Recovering/Resolving]
  - No therapeutic response [Unknown]
  - Therapy change [Unknown]
